FAERS Safety Report 10603156 (Version 10)
Quarter: 2019Q3

REPORT INFORMATION
  Report Type: Spontaneous
  Country: US (occurrence: US)
  Receive Date: 20141124
  Receipt Date: 20190821
  Transmission Date: 20191004
  Serious: No
  Sender: FDA-Public Use
  Company Number: US-PFIZER INC-2014093880

PATIENT
  Age: 50 Year
  Sex: Male
  Weight: 75 kg

DRUGS (37)
  1. LYRICA [Suspect]
     Active Substance: PREGABALIN
     Indication: PAIN
  2. DELTAPRIM [Concomitant]
     Dosage: UNK
  3. LACTOFERRIN [Concomitant]
     Active Substance: LACTOFERRIN
     Dosage: UNK
  4. ARMOUR THYROID [Concomitant]
     Active Substance: THYROID, PORCINE
     Dosage: UNK
  5. ACETYL L-CARNITINE [Concomitant]
     Active Substance: ACETYLCARNITINE
     Dosage: UNK
  6. LYRICA [Suspect]
     Active Substance: PREGABALIN
     Indication: PAIN
  7. MEPRON [Concomitant]
     Active Substance: ATOVAQUONE
     Dosage: UNK
  8. ARTEMISININ [Concomitant]
     Active Substance: DIETARY SUPPLEMENT
     Dosage: UNK
  9. XYLITOL [Concomitant]
     Active Substance: XYLITOL
     Dosage: UNK
  10. KLONOPIN [Concomitant]
     Active Substance: CLONAZEPAM
     Dosage: UNK
  11. FLAGYL [Concomitant]
     Active Substance: METRONIDAZOLE\METRONIDAZOLE HYDROCHLORIDE
     Dosage: UNK
  12. FISH OIL [Concomitant]
     Active Substance: FISH OIL
     Dosage: UNK
  13. ADVIL [Concomitant]
     Active Substance: IBUPROFEN
     Dosage: UNK
  14. VITAMIN D [Concomitant]
     Active Substance: VITAMIN D NOS
     Dosage: UNK
  15. LYRICA [Suspect]
     Active Substance: PREGABALIN
     Indication: LYME DISEASE
     Dosage: 50 MG, DAILY (EACH DAY)
  16. LYRICA [Suspect]
     Active Substance: PREGABALIN
     Indication: NEURALGIA
  17. COARTEM [Concomitant]
     Active Substance: ARTEMETHER\LUMEFANTRINE
     Dosage: UNK
  18. TRAZODONE [Concomitant]
     Active Substance: TRAZODONE HYDROCHLORIDE
     Dosage: UNK
  19. DHEA [Concomitant]
     Active Substance: PRASTERONE
     Dosage: UNK
  20. METHYLFOLATE [Concomitant]
     Active Substance: LEVOMEFOLATE CALCIUM
     Dosage: UNK
  21. CIPRO [Concomitant]
     Active Substance: CIPROFLOXACIN HYDROCHLORIDE
     Dosage: UNK
     Route: 042
  22. DIFLUCAN [Concomitant]
     Active Substance: FLUCONAZOLE
     Dosage: UNK
  23. LYRICA [Suspect]
     Active Substance: PREGABALIN
     Indication: FIBROMYALGIA
     Dosage: 200 MG, 2X/DAY
     Route: 048
  24. LYRICA [Suspect]
     Active Substance: PREGABALIN
     Indication: NEURALGIA
  25. LYRICA [Suspect]
     Active Substance: PREGABALIN
     Indication: CHRONIC FATIGUE SYNDROME
  26. MEROPENEM. [Concomitant]
     Active Substance: MEROPENEM
     Dosage: UNK
     Route: 042
  27. LAMICTAL [Concomitant]
     Active Substance: LAMOTRIGINE
     Dosage: UNK
  28. THIOCTIC ACID [Concomitant]
     Active Substance: .ALPHA.-LIPOIC ACID
     Dosage: UNK
  29. MAGNESIUM MALATE. [Concomitant]
     Active Substance: MAGNESIUM MALATE
     Dosage: UNK
  30. N-ACETYLCYSTEINE [Concomitant]
     Active Substance: ACETYLCYSTEINE
     Dosage: UNK
  31. OMNICEF [Concomitant]
     Active Substance: CEFDINIR
     Dosage: UNK
  32. TIGECYCLINE. [Concomitant]
     Active Substance: TIGECYCLINE
     Dosage: UNK
     Route: 042
  33. SEPTRA DS [Concomitant]
     Active Substance: SULFAMETHOXAZOLE\TRIMETHOPRIM
     Dosage: UNK
  34. LACTATED RINGERS SOLUTION [Concomitant]
     Active Substance: CALCIUM CHLORIDE\POTASSIUM CHLORIDE\SODIUM CHLORIDE\SODIUM LACTATE
     Dosage: UNK
     Route: 042
  35. LEUCOVORIN. [Concomitant]
     Active Substance: LEUCOVORIN
     Dosage: UNK
  36. VITAMIN C [Concomitant]
     Active Substance: ASCORBIC ACID
     Dosage: UNK
  37. MINOCYCLINE [Concomitant]
     Active Substance: MINOCYCLINE HYDROCHLORIDE
     Dosage: UNK

REACTIONS (1)
  - Malaise [Unknown]
